FAERS Safety Report 4477518-9 (Version None)
Quarter: 2004Q4

REPORT INFORMATION
  Report Type: 
  Country: None (occurrence: None)
  Receive Date: 20041018
  Receipt Date: 20040909
  Transmission Date: 20050328
  Serious: Yes (Disabling)
  Sender: FDA-Public Use
  Company Number: FR-GLAXOSMITHKLINE-B0345707A

PATIENT
  Age: 74 Year
  Sex: Female
  Weight: 68 kg

DRUGS (8)
  1. LAMICTAL [Suspect]
     Indication: BIPOLAR I DISORDER
     Route: 048
     Dates: start: 20040409
  2. ANAFRANIL [Suspect]
     Indication: DEPRESSION
     Dosage: 25MG THREE TIMES PER DAY
     Route: 048
     Dates: start: 20010101
  3. TRANXENE [Concomitant]
     Indication: ANXIETY
     Dosage: 10MG EIGHT TIMES PER DAY
     Route: 048
     Dates: start: 20010101
  4. TRIMEPRAZINE TAB [Concomitant]
     Indication: SLEEP DISORDER
     Dosage: 15DROP PER DAY
     Route: 048
     Dates: start: 20020101
  5. LEVOTHYROX [Concomitant]
     Dosage: 25MCG PER DAY
     Route: 048
  6. DUPHALAC [Concomitant]
     Indication: CONSTIPATION
     Dosage: 1SAC THREE TIMES PER DAY
     Route: 048
     Dates: start: 20000101
  7. SULFARLEM [Concomitant]
     Indication: DRY MOUTH
     Dosage: 25MG THREE TIMES PER DAY
     Route: 048
     Dates: start: 20000101
  8. PRAXINOR [Concomitant]
     Indication: ORTHOSTATIC HYPOTENSION
     Dosage: 1TAB THREE TIMES PER DAY
     Route: 048
     Dates: start: 20000101

REACTIONS (5)
  - ATAXIA [None]
  - BALANCE DISORDER [None]
  - DYSSTASIA [None]
  - FALL [None]
  - GAIT DISTURBANCE [None]
